FAERS Safety Report 22151551 (Version 1)
Quarter: 2023Q1

REPORT INFORMATION
  Report Type: Spontaneous
  Country: US (occurrence: None)
  Receive Date: 20230328
  Receipt Date: 20230328
  Transmission Date: 20230417
  Serious: Yes (Hospitalization)
  Sender: FDA-Public Use
  Company Number: None

PATIENT
  Age: 62 Year
  Sex: Male

DRUGS (9)
  1. AMBRISENTAN [Suspect]
     Active Substance: AMBRISENTAN
     Indication: Pulmonary hypertension
     Dosage: FREQUENCY : DAILY;?
     Route: 048
     Dates: start: 20140507
  2. SILDENAFIL [Concomitant]
  3. ROSUVASTATIN [Concomitant]
  4. DILTIAZEM [Concomitant]
  5. PULMICORT [Concomitant]
  6. FLONASE [Concomitant]
  7. WARFARIN [Concomitant]
  8. ISENTRESS [Concomitant]
  9. EPZICOM [Concomitant]

REACTIONS (5)
  - Sepsis [None]
  - Pneumonia [None]
  - Human metapneumovirus test positive [None]
  - Rhinovirus infection [None]
  - Enterovirus infection [None]

NARRATIVE: CASE EVENT DATE: 20230218
